FAERS Safety Report 6279081-9 (Version None)
Quarter: 2009Q3

REPORT INFORMATION
  Report Type: 
  Country: None (occurrence: None)
  Receive Date: 20090720
  Receipt Date: 20090720
  Transmission Date: 20100115
  Serious: Yes (Other)
  Sender: FDA-Public Use
  Company Number: None

PATIENT
  Age: 32 Year
  Sex: Male
  Weight: 68 kg

DRUGS (1)
  1. ALKA SELTZER PLUS  BAYER HEALTHCARE [Suspect]
     Indication: NASOPHARYNGITIS
     Dosage: 2 PILLS 3 TIMES A DAY
     Dates: start: 20090710, end: 20090715

REACTIONS (2)
  - EXPIRED DRUG ADMINISTERED [None]
  - HEADACHE [None]
